FAERS Safety Report 4861386-7 (Version None)
Quarter: 2005Q4

REPORT INFORMATION
  Report Type: 
  Country: None (occurrence: None)
  Receive Date: 20051129
  Receipt Date: 20050121
  Transmission Date: 20060501
  Serious: Yes (Disabling)
  Sender: FDA-Public Use
  Company Number: WAES 0501USA03429

PATIENT
  Age: 68 Year
  Sex: Female

DRUGS (9)
  1. FOSAMAX [Suspect]
     Indication: OSTEOPOROSIS
     Dosage: 70 MG WKY PO
     Route: 048
     Dates: start: 20020101
  2. FLOVENT [Concomitant]
  3. LEVOXYL [Concomitant]
  4. TRACLEER [Concomitant]
  5. ALBUTEROL [Concomitant]
  6. ANTINEOPLASTIC (UNSPECIFIED) [Concomitant]
  7. BUSPIRONE HCL [Concomitant]
  8. CALCIUM (UNSPECIFIED) [Concomitant]
  9. COD LIVER OIL [Concomitant]

REACTIONS (1)
  - PAIN IN EXTREMITY [None]
